FAERS Safety Report 11705650 (Version 5)
Quarter: 2016Q4

REPORT INFORMATION
  Report Type: Spontaneous
  Country: US (occurrence: US)
  Receive Date: 20151106
  Receipt Date: 20161014
  Transmission Date: 20170206
  Serious: Yes (Other)
  Sender: FDA-Public Use
  Company Number: US-PFIZER INC-2015366576

PATIENT
  Age: 56 Year
  Sex: Female
  Weight: 48 kg

DRUGS (10)
  1. DICYCLOMINE [Concomitant]
     Active Substance: DICYCLOMINE HYDROCHLORIDE
     Dosage: 20 MG, 3X/DAY
  2. OXYCODONE [Concomitant]
     Active Substance: OXYCODONE
     Dosage: ONE PILL EVERY 4 HOURS OR UP TO 5 TIMES A DAY
     Dates: start: 201403
  3. GENERLAC [Concomitant]
     Active Substance: LACTULOSE
     Dosage: 15 ML, 2X/DAY
     Dates: start: 2015
  4. CLINDAMYCIN. [Concomitant]
     Active Substance: CLINDAMYCIN
     Dosage: 600 MG, 3X/DAY (150MG; 4 CAPSULES EVERY 8 HOURS FOR 10 DAYS)
  5. PROAIR HFA [Concomitant]
     Active Substance: ALBUTEROL SULFATE
     Dosage: 0.5 MG EVERY SIX HOURS AS NEEDED
     Dates: start: 201402
  6. VFEND [Suspect]
     Active Substance: VORICONAZOLE
     Indication: BRONCHOPULMONARY ASPERGILLOSIS ALLERGIC
     Dosage: 200 MG, 2X/DAY
     Route: 048
     Dates: start: 20150822, end: 20150825
  7. VFEND [Suspect]
     Active Substance: VORICONAZOLE
     Dosage: 2 UNK, (2 PILLS)
     Dates: start: 201508
  8. FAMOTIDINE. [Concomitant]
     Active Substance: FAMOTIDINE
     Dosage: 1 PILL TWICE A DAY
     Route: 048
     Dates: start: 201405, end: 20150922
  9. LORATADINE. [Concomitant]
     Active Substance: LORATADINE
     Dosage: 10 MG, 1X/DAY
     Route: 048
     Dates: start: 2014
  10. ACEBUTOLOL [Concomitant]
     Active Substance: ACEBUTOLOL
     Indication: HEART RATE IRREGULAR
     Dosage: 20 MG, 1X/DAY
     Dates: start: 1986

REACTIONS (4)
  - Loss of consciousness [Unknown]
  - Tremor [Recovering/Resolving]
  - Fall [Unknown]
  - Weight decreased [Unknown]

NARRATIVE: CASE EVENT DATE: 20150822
